FAERS Safety Report 9125873 (Version 1)
Quarter: 2013Q1

REPORT INFORMATION
  Report Type: Spontaneous
  Country: US (occurrence: US)
  Receive Date: 20130121
  Receipt Date: 20130121
  Transmission Date: 20140127
  Serious: Yes (Hospitalization)
  Sender: FDA-Public Use
  Company Number: US-BAYER-2013-006034

PATIENT
  Age: 81 Year
  Sex: Male

DRUGS (6)
  1. ACETYLSALICYLIC ACID [Suspect]
     Dosage: 500 MG, UNK
     Dates: start: 20101021, end: 20120127
  2. CLOPIDOGREL [Suspect]
     Dosage: 75 MG, QD
     Route: 048
     Dates: start: 20101022, end: 20120127
  3. CARVEDILOL [Concomitant]
     Dosage: 50 MG, QD
  4. LISINOPRIL [Concomitant]
     Dosage: 30 MG, QD
  5. ATORVASTATIN [Concomitant]
     Dosage: 80 MG, QD
  6. FENOFIBRATE [Concomitant]
     Dosage: 145 MG, QD

REACTIONS (1)
  - Angina unstable [Recovered/Resolved]
